FAERS Safety Report 5476421-5 (Version None)
Quarter: 2007Q4

REPORT INFORMATION
  Report Type: 
  Country: None (occurrence: None)
  Receive Date: 20071003
  Receipt Date: 20070925
  Transmission Date: 20080405
  Serious: Yes (Other)
  Sender: FDA-Public Use
  Company Number: GB-PFIZER INC-2007080478

PATIENT
  Age: 40 Year
  Sex: Female

DRUGS (1)
  1. CHAMPIX [Suspect]
     Dosage: TEXT:1 MG
     Route: 048

REACTIONS (4)
  - ABDOMINAL PAIN [None]
  - ASTHENOPIA [None]
  - MUSCLE SPASMS [None]
  - NAUSEA [None]
